FAERS Safety Report 13071831 (Version 1)
Quarter: 2016Q4

REPORT INFORMATION
  Report Type: Spontaneous
  Country: JP (occurrence: JP)
  Receive Date: 20161229
  Receipt Date: 20161229
  Transmission Date: 20170207
  Serious: Yes (Hospitalization, Other)
  Sender: FDA-Public Use
  Company Number: JP-PFIZER INC-2016594562

PATIENT
  Age: 76 Year
  Sex: Female

DRUGS (1)
  1. METHOTREXATE SODIUM. [Suspect]
     Active Substance: METHOTREXATE SODIUM
     Indication: RHEUMATOID ARTHRITIS
     Dosage: UNK
     Route: 065

REACTIONS (6)
  - Nausea [Unknown]
  - Pancytopenia [Unknown]
  - Oropharyngeal pain [Unknown]
  - Hepatitis B antigen positive [Unknown]
  - Pyrexia [Unknown]
  - Glossodynia [Unknown]

NARRATIVE: CASE EVENT DATE: 201411
